FAERS Safety Report 8837191 (Version 1)
Quarter: 2012Q4

REPORT INFORMATION
  Report Type: Spontaneous
  Country: US (occurrence: None)
  Receive Date: 20121011
  Receipt Date: 20121011
  Transmission Date: 20130627
  Serious: Yes (Other)
  Sender: FDA-Public Use
  Company Number: None

PATIENT
  Age: 62 Year
  Sex: Female

DRUGS (5)
  1. HIZENTRA [Suspect]
     Indication: IMMUNODEFICIENCY COMMON VARIABLE
     Dosage: (16 G 1X/WK) ; (12 G 1X/WK)
  2. ALLEGRA [Concomitant]
  3. BENADRYL (DIPHENHYDRAMINE HYDROCHLORIDE) [Concomitant]
  4. TYLENOL (PARACETAMOL) [Concomitant]
  5. PREDNISONE (PREDNISONE) [Concomitant]

REACTIONS (5)
  - Pain [None]
  - Burning sensation [None]
  - Hypoaesthesia [None]
  - Autoimmune neuropathy [None]
  - Neuropathy peripheral [None]
